FAERS Safety Report 10434004 (Version 1)
Quarter: 2014Q3

REPORT INFORMATION
  Report Type: Spontaneous
  Country: MX (occurrence: MX)
  Receive Date: 20140905
  Receipt Date: 20140905
  Transmission Date: 20150326
  Serious: Yes (Other)
  Sender: FDA-Public Use
  Company Number: MX-GLAXOSMITHKLINE-A1087947A

PATIENT
  Sex: Female

DRUGS (1)
  1. INDOXYL GEL (BENZOYL PEROXIDE CLINDAMYCIN) [Suspect]
     Active Substance: BENZOYL PEROXIDE\CLINDAMYCIN PHOSPHATE
     Indication: ACNE
     Dosage: 2APP PER DAY
     Route: 061
     Dates: start: 2014, end: 2014

REACTIONS (3)
  - Skin irritation [Recovered/Resolved]
  - Burning sensation [Recovered/Resolved]
  - Erythema [Recovered/Resolved]

NARRATIVE: CASE EVENT DATE: 2014
